FAERS Safety Report 17756015 (Version 1)
Quarter: 2020Q2

REPORT INFORMATION
  Report Type: Spontaneous
  Country: US (occurrence: US)
  Receive Date: 20200507
  Receipt Date: 20200507
  Transmission Date: 20200714
  Serious: Yes (Hospitalization)
  Sender: FDA-Public Use
  Company Number: None

PATIENT
  Age: 47 Year
  Sex: Female
  Weight: 52.65 kg

DRUGS (6)
  1. MULTIVITAMIN [Concomitant]
     Active Substance: VITAMINS
  2. FISH OIL [Concomitant]
     Active Substance: FISH OIL
  3. VITAMIN B COMPLEX [Concomitant]
     Active Substance: CYANOCOBALAMIN\DEXPANTHENOL\NIACINAMIDE\PYRIDOXINE HYDROCHLORIDE\RIBOFLAVIN 5^-PHOSPHATE SODIUM\THIAMINE HYDROCHLORIDE\VITAMIN B COMPLEX
  4. VITAMIN D [Concomitant]
     Active Substance: VITAMIN D NOS
  5. PYRIDOSTIGMINE BROMIDE 60MG [Suspect]
     Active Substance: PYRIDOSTIGMINE BROMIDE
     Indication: MYASTHENIA GRAVIS
     Dates: start: 20191220
  6. IBUPROPHIN [Concomitant]

REACTIONS (10)
  - Fatigue [None]
  - Food interaction [None]
  - Tongue paralysis [None]
  - Muscular weakness [None]
  - Paraesthesia oral [None]
  - Aphasia [None]
  - Decreased appetite [None]
  - Chest pain [None]
  - Malaise [None]
  - Product use complaint [None]

NARRATIVE: CASE EVENT DATE: 20200418
